FAERS Safety Report 6942395-0 (Version None)
Quarter: 2010Q3

REPORT INFORMATION
  Report Type: 
  Country: None (occurrence: None)
  Receive Date: 20100826
  Receipt Date: 20100816
  Transmission Date: 20110219
  Serious: Yes (Hospitalization, Other)
  Sender: FDA-Public Use
  Company Number: PHHY2008GB31662

PATIENT
  Sex: Male

DRUGS (12)
  1. CLOZARIL [Suspect]
     Indication: SCHIZOPHRENIA
     Dosage: 150 MG
     Route: 048
     Dates: start: 20080131
  2. MERCAPTOPURINE [Suspect]
     Indication: CROHN'S DISEASE
     Dosage: 50 MG/DAY
  3. MERCAPTOPURINE [Suspect]
     Dosage: 30 MG/DAY
  4. MERCAPTOPURINE [Suspect]
     Dosage: 15 MG/DAY
  5. HYOSCINE [Concomitant]
     Dosage: 300UG/DAY
  6. MIRTAZAPINE [Concomitant]
     Dosage: 30MG/DAY
  7. MIRTAZAPINE [Concomitant]
     Dosage: 15 MG DAY
  8. NULYTELY [Concomitant]
  9. FYBOGEL [Concomitant]
  10. BUSCOPAN [Concomitant]
     Dosage: PRN
  11. TRAMADOL HCL [Concomitant]
     Dosage: PRN
  12. ACETAMINOPHEN [Concomitant]
     Dosage: PRN

REACTIONS (11)
  - ABDOMINAL PAIN [None]
  - CAECUM OPERATION [None]
  - COLECTOMY [None]
  - DRY SKIN [None]
  - GENERAL PHYSICAL CONDITION ABNORMAL [None]
  - HEADACHE [None]
  - INFLUENZA LIKE ILLNESS [None]
  - MENTAL DISORDER [None]
  - PSOAS ABSCESS [None]
  - RASH [None]
  - SMALL INTESTINAL OBSTRUCTION [None]
